FAERS Safety Report 10712038 (Version 1)
Quarter: 2015Q1

REPORT INFORMATION
  Report Type: Spontaneous
  Country: US (occurrence: US)
  Receive Date: 20150114
  Receipt Date: 20150114
  Transmission Date: 20150721
  Serious: No
  Sender: FDA-Public Use
  Company Number: US-ALLERGAN-1407936US

PATIENT
  Age: 62 Year
  Sex: Female

DRUGS (1)
  1. ACZONE [Suspect]
     Active Substance: DAPSONE
     Indication: ACNE
     Dosage: UNK, BID
     Route: 061
     Dates: start: 20140402

REACTIONS (3)
  - Nausea [Unknown]
  - Chromaturia [Unknown]
  - Pain [Unknown]

NARRATIVE: CASE EVENT DATE: 201404
